FAERS Safety Report 9013867 (Version 1)
Quarter: 2013Q1

REPORT INFORMATION
  Report Type: Spontaneous
  Country: US (occurrence: US)
  Receive Date: 20130115
  Receipt Date: 20130115
  Transmission Date: 20140127
  Serious: No
  Sender: FDA-Public Use
  Company Number: US-TEVA-380494USA

PATIENT
  Sex: Female

DRUGS (1)
  1. TRIAMCINOLONE [Suspect]
     Dosage: 55MCG/17G
     Route: 045

REACTIONS (2)
  - Bronchitis [Recovering/Resolving]
  - Upper-airway cough syndrome [Unknown]
